FAERS Safety Report 9542017 (Version 2)
Quarter: 2013Q4

REPORT INFORMATION
  Report Type: Report from Study
  Country: CA (occurrence: CA)
  Receive Date: 20130923
  Receipt Date: 20131025
  Transmission Date: 20140711
  Serious: Yes (Life-Threatening, Hospitalization)
  Sender: FDA-Public Use
  Company Number: CA-JNJFOC-20130909628

PATIENT
  Age: 39 Year
  Sex: Male
  Weight: 106 kg

DRUGS (4)
  1. REMICADE [Suspect]
     Indication: CROHN^S DISEASE
     Route: 042
     Dates: start: 20100429
  2. NADOLOL [Concomitant]
     Route: 065
  3. IMURAN [Concomitant]
     Route: 048
  4. SOLU MEDROL [Concomitant]
     Indication: PREMEDICATION
     Route: 042

REACTIONS (2)
  - Varices oesophageal [Recovering/Resolving]
  - Oesophageal varices haemorrhage [Recovering/Resolving]
